FAERS Safety Report 10730333 (Version 1)
Quarter: 2015Q1

REPORT INFORMATION
  Report Type: Spontaneous
  Country: US (occurrence: None)
  Receive Date: 20150121
  Receipt Date: 20150121
  Transmission Date: 20150721
  Serious: Yes (Hospitalization, Disabling, Other)
  Sender: FDA-Public Use
  Company Number: None

PATIENT
  Age: 52 Year
  Sex: Male
  Weight: 74.84 kg

DRUGS (3)
  1. MYCOPHENOLATE 500 [Suspect]
     Active Substance: MYCOPHENOLATE MOFETIL
     Indication: PROPHYLAXIS
     Dosage: 2 PILLS ALTERNATING 2/1 EVERYDAY TAKEN BY MOUTH
     Route: 048
  2. MYCOPHENOLATE 500 [Suspect]
     Active Substance: MYCOPHENOLATE MOFETIL
     Indication: PROTEIN URINE
     Dosage: 2 PILLS ALTERNATING 2/1 EVERYDAY TAKEN BY MOUTH
     Route: 048
  3. MYCOPHENOLATE 500 [Suspect]
     Active Substance: MYCOPHENOLATE MOFETIL
     Indication: RENAL DISORDER
     Dosage: 2 PILLS ALTERNATING 2/1 EVERYDAY TAKEN BY MOUTH
     Route: 048

REACTIONS (7)
  - Exercise tolerance decreased [None]
  - Coordination abnormal [None]
  - Feeling abnormal [None]
  - Balance disorder [None]
  - Gait disturbance [None]
  - Muscular weakness [None]
  - Fall [None]

NARRATIVE: CASE EVENT DATE: 20150104
